FAERS Safety Report 16935336 (Version 1)
Quarter: 2019Q4

REPORT INFORMATION
  Report Type: Spontaneous
  Country: US (occurrence: US)
  Receive Date: 20191018
  Receipt Date: 20191018
  Transmission Date: 20200122
  Serious: No
  Sender: FDA-Public Use
  Company Number: US-SA-2019SA288104

PATIENT
  Sex: Female

DRUGS (1)
  1. ALLEGRA [Suspect]
     Active Substance: FEXOFENADINE HYDROCHLORIDE
     Indication: HYPERSENSITIVITY
     Dosage: 30 MG, QD
     Route: 065
     Dates: start: 20191008, end: 20191008

REACTIONS (6)
  - Drug intolerance [Unknown]
  - Prescribed underdose [Unknown]
  - Intentional underdose [Unknown]
  - Unevaluable event [Unknown]
  - Product availability issue [Unknown]
  - Paraesthesia [Unknown]
